FAERS Safety Report 8406212-4 (Version None)
Quarter: 2012Q2

REPORT INFORMATION
  Report Type: 
  Country: None (occurrence: None)
  Receive Date: 20120604
  Receipt Date: 20120525
  Transmission Date: 20120825
  Serious: Yes (Hospitalization)
  Sender: FDA-Public Use
  Company Number: DE-JNJFOC-20120520992

PATIENT
  Age: 50 Year
  Sex: Male

DRUGS (2)
  1. AKINETON [Concomitant]
     Route: 065
  2. PALIPERIDONE [Suspect]
     Indication: SCHIZOPHRENIA
     Dosage: 100 - 150 MG
     Route: 030

REACTIONS (2)
  - THROMBOCYTOSIS [None]
  - IRON DEFICIENCY [None]
